FAERS Safety Report 8145397-4 (Version None)
Quarter: 2012Q1

REPORT INFORMATION
  Report Type: 
  Country: None (occurrence: None)
  Receive Date: 20120217
  Receipt Date: 20120209
  Transmission Date: 20120608
  Serious: Yes (Hospitalization, Other)
  Sender: FDA-Public Use
  Company Number: US-JNJFOC-20111008358

PATIENT
  Sex: Female

DRUGS (15)
  1. LOVASTATIN [Concomitant]
     Route: 065
  2. METFORMIN HCL [Concomitant]
     Indication: DIABETES MELLITUS
     Route: 047
  3. ASPIRIN [Concomitant]
     Route: 065
  4. LEVAQUIN [Suspect]
     Indication: DYSPNOEA
     Route: 048
  5. LEVAQUIN [Suspect]
     Indication: PYREXIA
     Route: 048
  6. LEVAQUIN [Suspect]
     Indication: FATIGUE
     Route: 048
  7. LEVAQUIN [Suspect]
     Route: 042
  8. AMLODIPINE [Concomitant]
     Route: 065
  9. LEVAQUIN [Suspect]
     Indication: CHEST PAIN
     Route: 048
  10. LEVAQUIN [Suspect]
     Route: 042
  11. LEVAQUIN [Suspect]
     Route: 042
  12. LEVAQUIN [Suspect]
     Route: 042
  13. BENICAR [Concomitant]
     Route: 065
  14. ACIPHEX [Concomitant]
     Route: 065
  15. ZOLOFT [Concomitant]
     Route: 065

REACTIONS (13)
  - RAYNAUD'S PHENOMENON [None]
  - DEPRESSION [None]
  - STAPHYLOCOCCAL INFECTION [None]
  - ANAEMIA [None]
  - CEREBROVASCULAR ACCIDENT [None]
  - RENAL FAILURE [None]
  - ALOPECIA [None]
  - HEPATIC CYST [None]
  - RENAL CYST [None]
  - TENDONITIS [None]
  - STEVENS-JOHNSON SYNDROME [None]
  - AMNESIA [None]
  - CLOSTRIDIUM DIFFICILE COLITIS [None]
